FAERS Safety Report 6913132-0 (Version None)
Quarter: 2010Q3

REPORT INFORMATION
  Report Type: 
  Country: None (occurrence: None)
  Receive Date: 20100806
  Receipt Date: 20090807
  Transmission Date: 20110219
  Serious: No
  Sender: FDA-Public Use
  Company Number: US-PFIZER INC-2009228652

PATIENT
  Sex: Male
  Weight: 74.8 kg

DRUGS (9)
  1. DETROL LA [Suspect]
     Indication: HYPERTONIC BLADDER
     Dosage: FREQUENCY: EVERY DAY;
     Route: 048
     Dates: start: 20030101, end: 20030101
  2. SYNTHROID [Concomitant]
  3. FLUOXETINE [Concomitant]
  4. FOLIC ACID [Concomitant]
  5. VITAMIN B-12 [Concomitant]
  6. PEPCID [Concomitant]
  7. METOPROLOL [Concomitant]
  8. METFORMIN [Concomitant]
  9. BACLOFEN [Concomitant]

REACTIONS (1)
  - NAUSEA [None]
